FAERS Safety Report 9264485 (Version 2)
Quarter: 2014Q2

REPORT INFORMATION
  Report Type: Spontaneous
  Country: CA (occurrence: CA)
  Receive Date: 20130501
  Receipt Date: 20140610
  Transmission Date: 20141212
  Serious: Yes (Hospitalization)
  Sender: FDA-Public Use
  Company Number: CA-ROCHE-1217416

PATIENT
  Age: 27 Year
  Sex: Female

DRUGS (8)
  1. XOLAIR [Suspect]
     Indication: ASTHMA
     Dosage: VIAL
     Route: 058
     Dates: start: 20101118
  2. XOLAIR [Suspect]
     Route: 058
     Dates: start: 20120627
  3. XOLAIR [Suspect]
     Route: 058
     Dates: start: 201301
  4. VENTOLIN [Concomitant]
  5. ADVAIR [Concomitant]
  6. QVAR [Concomitant]
  7. SINGULAIR [Concomitant]
  8. ATROVENT [Concomitant]

REACTIONS (6)
  - Asthma [Unknown]
  - Sinus congestion [Unknown]
  - Nasopharyngitis [Unknown]
  - Productive cough [Unknown]
  - Dyspnoea [Unknown]
  - Wheezing [Unknown]
